FAERS Safety Report 20713407 (Version 1)
Quarter: 2022Q2

REPORT INFORMATION
  Report Type: Spontaneous
  Country: GB (occurrence: GB)
  Receive Date: 20220415
  Receipt Date: 20220415
  Transmission Date: 20220721
  Serious: Yes (Other)
  Sender: FDA-Public Use
  Company Number: None

PATIENT
  Age: 74 Year
  Sex: Female
  Weight: 42 kg

DRUGS (9)
  1. FLUTICASONE FUROATE [Suspect]
     Active Substance: FLUTICASONE FUROATE
     Indication: Product used for unknown indication
     Dosage: 27.5 MG
     Route: 065
     Dates: start: 20220411
  2. FLUTICASONE FUROATE [Concomitant]
     Active Substance: FLUTICASONE FUROATE
     Indication: Product used for unknown indication
     Dosage: 1 DF, QD (1  SQUIRT TO EACH NOSTRIL ONCE A DAY)
     Route: 065
     Dates: start: 20220307
  3. BECONASE AQ [Concomitant]
     Active Substance: BECLOMETHASONE DIPROPIONATE MONOHYDRATE
     Indication: Product used for unknown indication
     Dosage: 2 DF, BID (TWO PUFFS TWICE DAILY)
     Route: 065
     Dates: start: 20160928
  4. BECLOMETHASONE DIPROPIONATE [Concomitant]
     Active Substance: BECLOMETHASONE DIPROPIONATE
     Indication: Product used for unknown indication
     Dosage: 2 DF, BID (INHALE 2 DOSES TWICE A DAY)
     Route: 055
     Dates: start: 20211125
  5. ESTRADIOL [Concomitant]
     Active Substance: ESTRADIOL
     Indication: Product used for unknown indication
     Dosage: UNK UNK, WE (TWICE WEEKLY)
     Route: 065
     Dates: start: 20200611
  6. INDAPAMIDE [Concomitant]
     Active Substance: INDAPAMIDE
     Indication: Product used for unknown indication
     Dosage: 1 DF, QD (TAKE ONE EACH MORNING)
     Route: 065
     Dates: start: 20220331
  7. LISINOPRIL [Concomitant]
     Active Substance: LISINOPRIL
     Indication: Product used for unknown indication
     Dosage: 1 DF, QD (TAKE ONE DAILY)
     Route: 065
     Dates: start: 20220117, end: 20220331
  8. LOSARTAN [Concomitant]
     Active Substance: LOSARTAN
     Indication: Product used for unknown indication
     Dosage: 1 DF, QD (TAKE ONE DAILY)
     Route: 065
     Dates: start: 20220407
  9. ALBUTEROL [Concomitant]
     Active Substance: ALBUTEROL
     Indication: Product used for unknown indication
     Dosage: 2 DF (INHALE 2 DOSES AS NEEDED)
     Route: 055
     Dates: start: 20210106

REACTIONS (1)
  - Syncope [Recovered/Resolved]

NARRATIVE: CASE EVENT DATE: 20220411
